FAERS Safety Report 21633423 (Version 1)
Quarter: 2022Q4

REPORT INFORMATION
  Report Type: Spontaneous
  Country: KR (occurrence: KR)
  Receive Date: 20221123
  Receipt Date: 20221123
  Transmission Date: 20230112
  Serious: No
  Sender: FDA-Public Use
  Company Number: KR-PFIZER INC-202201312095

PATIENT
  Age: 63 Year
  Sex: Male

DRUGS (2)
  1. PAXLOVID [Suspect]
     Active Substance: NIRMATRELVIR\RITONAVIR
     Indication: COVID-19 treatment
     Dosage: 6 DF, SINGLE (4 TABLETS OF NIRMATRELVIR AND 2 TABLETS OF RITONAVIR AT 12PM TODAY)
     Dates: start: 20221118
  2. PAXLOVID [Suspect]
     Active Substance: NIRMATRELVIR\RITONAVIR
     Dosage: [PF-07321332 300MG/[RITONAVIR 100MG]; 2X/DAY
     Route: 048
     Dates: start: 20221119

REACTIONS (2)
  - Dysgeusia [Not Recovered/Not Resolved]
  - Wrong dose [Unknown]

NARRATIVE: CASE EVENT DATE: 20221118
